FAERS Safety Report 11103911 (Version 1)
Quarter: 2015Q2

REPORT INFORMATION
  Report Type: Spontaneous
  Country: CH (occurrence: CH)
  Receive Date: 20150511
  Receipt Date: 20150511
  Transmission Date: 20150821
  Serious: Yes (Hospitalization)
  Sender: FDA-Public Use
  Company Number: CH-LPDUSPRD-20150220

PATIENT
  Age: 14 Year
  Sex: Female

DRUGS (3)
  1. VENOFER [Suspect]
     Active Substance: IRON SUCROSE
     Dosage: 150 MG, 1 TOTAL
     Route: 041
     Dates: start: 20141014, end: 20141014
  2. TAVEGL INJEKTIONSLOESUNG [Concomitant]
     Dosage: 1 MG
     Route: 040
     Dates: start: 20141012, end: 20141014
  3. PERFALGAN 500 MG KINDER INFUSIONSLOESUNG [Concomitant]
     Dosage: 500 MG
     Route: 040
     Dates: start: 20141012, end: 20141014

REACTIONS (6)
  - Injection site haematoma [Not Recovered/Not Resolved]
  - Injection site oedema [Recovered/Resolved]
  - Injection site erythema [Recovered/Resolved]
  - Injection site extravasation [Recovered/Resolved]
  - Injection site discolouration [Recovered/Resolved]
  - Injection site pain [Recovered/Resolved]

NARRATIVE: CASE EVENT DATE: 20141014
